FAERS Safety Report 4551272-4 (Version None)
Quarter: 2005Q1

REPORT INFORMATION
  Report Type: 
  Country: None (occurrence: None)
  Receive Date: 20050106
  Receipt Date: 20041221
  Transmission Date: 20050727
  Serious: Yes (Other)
  Sender: FDA-Public Use
  Company Number: JP_041205516

PATIENT
  Age: 4 Week
  Sex: Male
  Weight: 2 kg

DRUGS (7)
  1. VANCOMYCIN [Suspect]
     Indication: SEPSIS
     Dosage: 25MG 3/DAY
     Dates: start: 20040821, end: 20040906
  2. DOPAMINE HYDROCHLORIDE [Concomitant]
  3. DORMICUM (MIDAZOLAM MALEATE) [Concomitant]
  4. SANDOSATIN (OCTREOTIDE ACETATE) [Concomitant]
  5. LASIX [Concomitant]
  6. HEPARIN [Concomitant]
  7. POTASSIUM [Concomitant]

REACTIONS (1)
  - PANCYTOPENIA [None]
